FAERS Safety Report 8722352 (Version 7)
Quarter: 2013Q1

REPORT INFORMATION
  Report Type: Spontaneous
  Country: US (occurrence: US)
  Receive Date: 20120814
  Receipt Date: 20130102
  Transmission Date: 20140127
  Serious: Yes (Hospitalization, Disabling, Other)
  Sender: FDA-Public Use
  Company Number: US-009507513-1204USA04273

PATIENT
  Sex: 0

DRUGS (2)
  1. FOSAMAX [Suspect]
     Indication: OSTEOPOROSIS
     Dosage: 70 MG, QW
     Route: 048
     Dates: start: 200108, end: 200901
  2. ALENDRONATE SODIUM [Suspect]
     Dosage: 70 MG, QW
     Route: 048

REACTIONS (41)
  - Femur fracture [Unknown]
  - Hip arthroplasty [Unknown]
  - Mastectomy [Unknown]
  - Invasive ductal breast carcinoma [Unknown]
  - Pubis fracture [Unknown]
  - Fracture debridement [Recovering/Resolving]
  - Tenolysis [Unknown]
  - Tooth disorder [Unknown]
  - Tooth disorder [Unknown]
  - Tooth disorder [Unknown]
  - Tooth disorder [Unknown]
  - Gingival pain [Unknown]
  - Gingival pain [Unknown]
  - Gingival pain [Unknown]
  - Rheumatoid arthritis [Unknown]
  - Eye operation [Unknown]
  - Infection [Unknown]
  - Wrist fracture [Unknown]
  - Animal bite [Recovered/Resolved]
  - Throat irritation [Unknown]
  - Weight decreased [Unknown]
  - Rheumatoid arthritis [Unknown]
  - Foot fracture [Unknown]
  - Osteoarthritis [Unknown]
  - Fracture nonunion [Unknown]
  - Tenosynovitis stenosans [Recovering/Resolving]
  - Arthritis [Unknown]
  - Hypertension [Unknown]
  - Osteoarthritis [Unknown]
  - Asthenia [Unknown]
  - Gastrooesophageal reflux disease [Unknown]
  - Back pain [Unknown]
  - Urinary tract infection [Recovered/Resolved]
  - Hyperlipidaemia [Unknown]
  - Psoriasis [Unknown]
  - Cardiac murmur [Unknown]
  - Obesity [Unknown]
  - Tenosynovitis [Recovering/Resolving]
  - Cellulitis [Recovering/Resolving]
  - Clostridium difficile colitis [Unknown]
  - Osteopenia [Unknown]
